FAERS Safety Report 6985932-2 (Version None)
Quarter: 2010Q3

REPORT INFORMATION
  Report Type: 
  Country: None (occurrence: None)
  Receive Date: 20100915
  Receipt Date: 20100902
  Transmission Date: 20110219
  Serious: Yes (Hospitalization)
  Sender: FDA-Public Use
  Company Number: US-ELI_LILLY_AND_COMPANY-US201009000825

PATIENT
  Age: 81 Year
  Sex: Female

DRUGS (4)
  1. HUMALOG [Suspect]
     Indication: DIABETES MELLITUS
     Dosage: UNK, AS NEEDED
  2. GLYBURIDE [Concomitant]
  3. JANUVIA [Concomitant]
  4. PREDNISONE [Concomitant]

REACTIONS (2)
  - BACK DISORDER [None]
  - HIP FRACTURE [None]
